FAERS Safety Report 11754167 (Version 1)
Quarter: 2015Q4

REPORT INFORMATION
  Report Type: Spontaneous
  Country: CO (occurrence: CO)
  Receive Date: 20151119
  Receipt Date: 20151119
  Transmission Date: 20160304
  Serious: Yes (Life-Threatening)
  Sender: FDA-Public Use
  Company Number: PHHY2015CO151217

PATIENT

DRUGS (1)
  1. EXELON PATCH [Suspect]
     Active Substance: RIVASTIGMINE
     Indication: PRODUCT USED FOR UNKNOWN INDICATION
     Dosage: 13.3 MG (PATCH 27 MG/ 15CM2), UNK
     Route: 062

REACTIONS (1)
  - Hypertensive crisis [Unknown]
